FAERS Safety Report 4395662-1 (Version None)
Quarter: 2004Q3

REPORT INFORMATION
  Report Type: 
  Country: None (occurrence: None)
  Receive Date: 20040708
  Receipt Date: 20040625
  Transmission Date: 20050211
  Serious: Yes (Hospitalization)
  Sender: FDA-Public Use
  Company Number: US-JNJFOC-20040607895

PATIENT
  Age: 82 Year
  Sex: Female

DRUGS (7)
  1. INFLIXIMAB(INFLIXIMAB, RECOMBINANT) LYOPHILIZED POWDER [Suspect]
     Indication: RHEUMATOID ARTHRITIS
     Dosage: INTRAVENOUS
     Route: 042
     Dates: start: 20010222
  2. LASIX [Concomitant]
  3. LIPITOR [Concomitant]
  4. ATENOLOL [Concomitant]
  5. XANAX [Concomitant]
  6. ELAVIL [Concomitant]
  7. METHOTREXATE [Concomitant]

REACTIONS (9)
  - ANTINUCLEAR ANTIBODY POSITIVE [None]
  - BLOOD URINE [None]
  - CLOSTRIDIUM COLITIS [None]
  - CONFUSIONAL STATE [None]
  - COUGH [None]
  - DIFFICULTY IN WALKING [None]
  - PYREXIA [None]
  - RED BLOOD CELL SEDIMENTATION RATE INCREASED [None]
  - WHITE BLOOD CELL COUNT INCREASED [None]
